FAERS Safety Report 19012537 (Version 1)
Quarter: 2021Q1

REPORT INFORMATION
  Report Type: Spontaneous
  Country: US (occurrence: US)
  Receive Date: 20210316
  Receipt Date: 20210316
  Transmission Date: 20210420
  Serious: Yes (Hospitalization)
  Sender: FDA-Public Use
  Company Number: US-PROCTER_AND_GAMBLE-PH21002395

PATIENT

DRUGS (1)
  1. VICKS NOS [Suspect]
     Active Substance: MENTHOL OR OXYMETAZOLINE HYDROCHLORIDE OR PHENYLEPHRINE HYDROCHLORIDE
     Dosage: UNK

REACTIONS (4)
  - Throat tightness [Unknown]
  - Urticaria [Unknown]
  - Swelling face [Unknown]
  - Hypersensitivity [Unknown]
